FAERS Safety Report 24230610 (Version 1)
Quarter: 2024Q3

REPORT INFORMATION
  Report Type: Spontaneous
  Country: ES (occurrence: ES)
  Receive Date: 20240821
  Receipt Date: 20240821
  Transmission Date: 20241017
  Serious: Yes (Other)
  Sender: SANDOZ
  Company Number: ES-002147023-PHHY2018ES021558

PATIENT
  Age: 60 Year
  Sex: Male

DRUGS (21)
  1. ADALIMUMAB [Suspect]
     Active Substance: ADALIMUMAB
     Indication: Inflammatory bowel disease
     Dosage: 40 MG, QW
     Route: 065
     Dates: start: 201410
  2. ADALIMUMAB [Suspect]
     Active Substance: ADALIMUMAB
     Indication: Gastrointestinal fistula
  3. ADALIMUMAB [Suspect]
     Active Substance: ADALIMUMAB
     Indication: Immunodeficiency common variable
  4. ADALIMUMAB [Suspect]
     Active Substance: ADALIMUMAB
     Indication: Psoriasis
  5. BUDESONIDE [Suspect]
     Active Substance: BUDESONIDE
     Indication: Inflammatory bowel disease
     Dosage: UNK
     Route: 065
  6. BUDESONIDE [Suspect]
     Active Substance: BUDESONIDE
     Indication: Gastrointestinal fistula
  7. FILGRASTIM [Suspect]
     Active Substance: FILGRASTIM
     Indication: Inflammatory bowel disease
     Dosage: UNKNOWN DOSE
     Route: 065
  8. FILGRASTIM [Suspect]
     Active Substance: FILGRASTIM
     Indication: Inflammatory bowel disease
     Route: 065
  9. AZATHIOPRINE SODIUM [Suspect]
     Active Substance: AZATHIOPRINE SODIUM
     Indication: Inflammatory bowel disease
     Route: 065
  10. AZATHIOPRINE SODIUM [Suspect]
     Active Substance: AZATHIOPRINE SODIUM
     Indication: Immunodeficiency common variable
  11. INFLIXIMAB [Suspect]
     Active Substance: INFLIXIMAB
     Indication: Inflammatory bowel disease
     Dosage: UNK
     Route: 042
  12. INFLIXIMAB [Suspect]
     Active Substance: INFLIXIMAB
     Indication: Gastrointestinal fistula
  13. INFLIXIMAB [Suspect]
     Active Substance: INFLIXIMAB
     Indication: Immunodeficiency common variable
  14. METHYLPREDNISOLONE [Suspect]
     Active Substance: METHYLPREDNISOLONE
     Indication: Inflammatory bowel disease
     Route: 065
  15. MESALAMINE [Suspect]
     Active Substance: MESALAMINE
     Indication: Inflammatory bowel disease
     Route: 065
  16. MESALAMINE [Suspect]
     Active Substance: MESALAMINE
     Indication: Gastrointestinal fistula
  17. MESALAMINE [Suspect]
     Active Substance: MESALAMINE
     Indication: Immunodeficiency common variable
  18. USTEKINUMAB [Concomitant]
     Active Substance: USTEKINUMAB
     Indication: Inflammatory bowel disease
     Dosage: 180 MG, UNK
     Route: 058
  19. USTEKINUMAB [Concomitant]
     Active Substance: USTEKINUMAB
     Indication: Immunodeficiency common variable
     Dosage: 90 MG, Q8WK
     Route: 058
     Dates: start: 2014
  20. USTEKINUMAB [Concomitant]
     Active Substance: USTEKINUMAB
     Indication: Gastrointestinal fistula
     Dosage: UNK
     Route: 065
  21. USTEKINUMAB [Concomitant]
     Active Substance: USTEKINUMAB
     Indication: Immunodeficiency common variable

REACTIONS (13)
  - Campylobacter gastroenteritis [Recovered/Resolved]
  - Fistula [Recovered/Resolved]
  - Perforation [Recovered/Resolved]
  - Periumbilical abscess [Recovered/Resolved]
  - Small intestinal obstruction [Recovered/Resolved]
  - Gastroenteritis clostridial [Recovered/Resolved]
  - Intestinal perforation [Recovered/Resolved]
  - Intestinal fistula [Recovered/Resolved]
  - Cytomegalovirus enteritis [Recovered/Resolved]
  - Drug ineffective for unapproved indication [Unknown]
  - Off label use [Unknown]
  - Therapeutic product effect incomplete [Unknown]
  - Drug ineffective [Unknown]

NARRATIVE: CASE EVENT DATE: 20141001
